FAERS Safety Report 23440810 (Version 1)
Quarter: 2024Q1

REPORT INFORMATION
  Report Type: Other
  Country: US (occurrence: None)
  Receive Date: 20240125
  Receipt Date: 20240125
  Transmission Date: 20240410
  Serious: Yes (Hospitalization)
  Sender: FDA-Public Use
  Company Number: US-ROCHE-3492858

PATIENT
  Age: 14 Year
  Sex: Female
  Weight: 60.2 kg

DRUGS (1)
  1. HEMLIBRA [Suspect]
     Active Substance: EMICIZUMAB-KXWH
     Indication: Factor VIII deficiency
     Route: 065

REACTIONS (2)
  - Off label use [Unknown]
  - Joint injury [Recovered/Resolved]

NARRATIVE: CASE EVENT DATE: 20231101
